FAERS Safety Report 15772838 (Version 2)
Quarter: 2018Q4

REPORT INFORMATION
  Report Type: Spontaneous
  Country: US (occurrence: US)
  Receive Date: 20181228
  Receipt Date: 20181231
  Transmission Date: 20190205
  Serious: Yes (Hospitalization, Other)
  Sender: FDA-Public Use
  Company Number: US-PFIZER INC-2018395455

PATIENT
  Age: 39 Year
  Sex: Female
  Weight: 88 kg

DRUGS (4)
  1. INSPRA [Suspect]
     Active Substance: EPLERENONE
     Dosage: 150 MG, THREE TIMES DAILY
     Route: 048
     Dates: start: 20151225
  2. INSPRA [Suspect]
     Active Substance: EPLERENONE
     Indication: CARDIAC FAILURE
     Dosage: 100 MG, THREE TIMES A DAY
     Route: 048
  3. INSPRA [Suspect]
     Active Substance: EPLERENONE
     Dosage: 50 MG, 3 TIMES A DAY
  4. TORSEMIDE. [Concomitant]
     Active Substance: TORSEMIDE
     Indication: CARDIAC FAILURE
     Dosage: 100 MG, 3X/DAY
     Route: 048
     Dates: start: 201510

REACTIONS (2)
  - Acute kidney injury [Unknown]
  - Overdose [Unknown]
